FAERS Safety Report 7439710-0 (Version None)
Quarter: 2011Q2

REPORT INFORMATION
  Report Type: 
  Country: None (occurrence: None)
  Receive Date: 20110427
  Receipt Date: 20110414
  Transmission Date: 20111010
  Serious: Yes (Hospitalization)
  Sender: FDA-Public Use
  Company Number: PHHY2011FR31852

PATIENT
  Age: 98 Year
  Sex: Male

DRUGS (1)
  1. TEGRETOL [Suspect]
     Dosage: 200 MG, QD
     Dates: start: 20110121, end: 20110121

REACTIONS (11)
  - RESPIRATORY DISTRESS [None]
  - ALTERED STATE OF CONSCIOUSNESS [None]
  - VOMITING [None]
  - HAEMATURIA [None]
  - PNEUMONIA ASPIRATION [None]
  - HYPERGLYCAEMIA [None]
  - BLOOD PRESSURE INCREASED [None]
  - COMA [None]
  - DYSPNOEA [None]
  - BRONCHIAL OBSTRUCTION [None]
  - CREPITATIONS [None]
